FAERS Safety Report 9247005 (Version 2)
Quarter: 2013Q2

REPORT INFORMATION
  Report Type: Spontaneous
  Country: JP (occurrence: JP)
  Receive Date: 20130423
  Receipt Date: 20130501
  Transmission Date: 20140414
  Serious: Yes (Hospitalization, Other)
  Sender: FDA-Public Use
  Company Number: JP-BRISTOL-MYERS SQUIBB COMPANY-18814129

PATIENT
  Sex: 0

DRUGS (1)
  1. ORENCIA FOR INJ 250 MG/VIAL [Suspect]
     Route: 042

REACTIONS (1)
  - Cerebral haemorrhage [Unknown]
